FAERS Safety Report 6001321-1 (Version None)
Quarter: 2008Q4

REPORT INFORMATION
  Report Type: 
  Country: None (occurrence: None)
  Receive Date: 20081215
  Receipt Date: 20081209
  Transmission Date: 20090506
  Serious: Yes (Other)
  Sender: FDA-Public Use
  Company Number: PHHY2008CA30013

PATIENT
  Sex: Male

DRUGS (2)
  1. DIOVAN [Suspect]
     Indication: HYPERTENSION
     Dosage: 80 MG DAILY
     Route: 048
     Dates: start: 20080630
  2. NORVASC [Concomitant]
     Dosage: 10 MG, BID
     Dates: start: 20080627, end: 20081127

REACTIONS (3)
  - BLOOD PRESSURE SYSTOLIC INCREASED [None]
  - MICROALBUMINURIA [None]
  - OEDEMA PERIPHERAL [None]
